FAERS Safety Report 17897131 (Version 2)
Quarter: 2021Q4

REPORT INFORMATION
  Report Type: Spontaneous
  Country: CA (occurrence: CA)
  Receive Date: 20200615
  Receipt Date: 20211229
  Transmission Date: 20220303
  Serious: Yes (Hospitalization, Other)
  Sender: FDA-Public Use
  Company Number: CA-PFIZER INC-2020229143

PATIENT
  Age: 40 Year

DRUGS (43)
  1. HYDROMORPHONE HYDROCHLORIDE [Suspect]
     Active Substance: HYDROMORPHONE HYDROCHLORIDE
     Indication: Withdrawal syndrome
     Dosage: 4 MG, 8 EVERY 1 DAY
     Route: 042
  2. HYDROMORPHONE HYDROCHLORIDE [Suspect]
     Active Substance: HYDROMORPHONE HYDROCHLORIDE
     Indication: Drug withdrawal syndrome
     Dosage: 6 MG, 8 EVERY 1 DAY
     Route: 042
  3. HYDROMORPHONE HYDROCHLORIDE [Suspect]
     Active Substance: HYDROMORPHONE HYDROCHLORIDE
     Indication: Pain
     Dosage: UNK
     Route: 042
  4. HYDROMORPHONE HYDROCHLORIDE [Suspect]
     Active Substance: HYDROMORPHONE HYDROCHLORIDE
     Dosage: 4 MG, 8 EVERY 1 DAY
     Route: 042
  5. HYDROMORPHONE HYDROCHLORIDE [Suspect]
     Active Substance: HYDROMORPHONE HYDROCHLORIDE
     Dosage: 4 MG
     Route: 042
  6. HYDROMORPHONE HYDROCHLORIDE [Suspect]
     Active Substance: HYDROMORPHONE HYDROCHLORIDE
     Dosage: 4 MG, 1 EVERY 3 HOURS
     Route: 042
  7. HYDROMORPHONE HYDROCHLORIDE [Suspect]
     Active Substance: HYDROMORPHONE HYDROCHLORIDE
     Dosage: 6 MG, 1 EVERY 3 HOURS
     Route: 042
  8. HYDROMORPHONE HYDROCHLORIDE [Suspect]
     Active Substance: HYDROMORPHONE HYDROCHLORIDE
     Dosage: 2 MG, 1 EVERY 2 HOURS
     Route: 042
  9. HYDROMORPHONE HYDROCHLORIDE [Suspect]
     Active Substance: HYDROMORPHONE HYDROCHLORIDE
     Dosage: 4 MG, 1 EVERY 3 HOURS
     Route: 042
  10. HYDROMORPHONE HYDROCHLORIDE [Suspect]
     Active Substance: HYDROMORPHONE HYDROCHLORIDE
     Dosage: UNK
     Route: 058
  11. HYDROMORPHONE HYDROCHLORIDE [Suspect]
     Active Substance: HYDROMORPHONE HYDROCHLORIDE
     Dosage: 4 MG, 1 EVERY 2 HOURS
     Route: 042
  12. HYDROMORPHONE HYDROCHLORIDE [Suspect]
     Active Substance: HYDROMORPHONE HYDROCHLORIDE
     Dosage: 7 MG, EVERY 3 HOURS (Q3H) ROUTINE
     Route: 048
  13. MORPHINE SULFATE [Suspect]
     Active Substance: MORPHINE SULFATE
     Indication: Pain
     Dosage: UNK
     Route: 048
  14. HYDROMORPHONE HCL [Suspect]
     Active Substance: HYDROMORPHONE HYDROCHLORIDE
     Indication: Withdrawal syndrome
     Dosage: 7 MG, DAILY
     Route: 048
  15. HYDROMORPHONE HCL [Suspect]
     Active Substance: HYDROMORPHONE HYDROCHLORIDE
     Indication: Pain
     Dosage: 7 MG, 1 EVERY 3 HOURS
     Route: 048
  16. HYDROMORPHONE HCL [Suspect]
     Active Substance: HYDROMORPHONE HYDROCHLORIDE
     Indication: Drug withdrawal syndrome
     Dosage: UNK
     Route: 048
  17. MS CONTIN [Suspect]
     Active Substance: MORPHINE SULFATE
     Indication: Pain
     Dosage: 21 MG
     Route: 065
  18. MS CONTIN [Suspect]
     Active Substance: MORPHINE SULFATE
     Indication: Pain
  19. SUBOXONE [Suspect]
     Active Substance: BUPRENORPHINE HYDROCHLORIDE\NALOXONE HYDROCHLORIDE
     Indication: Drug use disorder
     Dosage: UNK
     Route: 065
  20. SUBOXONE [Suspect]
     Active Substance: BUPRENORPHINE HYDROCHLORIDE\NALOXONE HYDROCHLORIDE
     Indication: Drug use disorder
     Dosage: 8 MG, TWICE A DAY
     Route: 065
  21. SUBOXONE [Suspect]
     Active Substance: BUPRENORPHINE HYDROCHLORIDE\NALOXONE HYDROCHLORIDE
     Dosage: 12 MG, TWICE A DAY
     Route: 065
  22. SUBOXONE [Suspect]
     Active Substance: BUPRENORPHINE HYDROCHLORIDE\NALOXONE HYDROCHLORIDE
     Dosage: 24 MG
     Route: 065
  23. SUBOXONE [Suspect]
     Active Substance: BUPRENORPHINE HYDROCHLORIDE\NALOXONE HYDROCHLORIDE
     Dosage: UNK
     Route: 065
  24. SUBOXONE [Suspect]
     Active Substance: BUPRENORPHINE HYDROCHLORIDE\NALOXONE HYDROCHLORIDE
     Dosage: 3 MG
     Route: 065
  25. BUPRENORPHINE AND NALOXONE [Suspect]
     Active Substance: BUPRENORPHINE HYDROCHLORIDE\NALOXONE HYDROCHLORIDE
     Indication: Pain
     Dosage: 1 MG
     Route: 065
  26. BUPRENORPHINE AND NALOXONE [Suspect]
     Active Substance: BUPRENORPHINE HYDROCHLORIDE\NALOXONE HYDROCHLORIDE
     Indication: Drug withdrawal syndrome
     Dosage: 12 MG, TWICE A DAY
     Route: 065
  27. BUPRENORPHINE AND NALOXONE [Suspect]
     Active Substance: BUPRENORPHINE HYDROCHLORIDE\NALOXONE HYDROCHLORIDE
     Indication: Drug use disorder
     Dosage: 8 MG, TWICE A DAY
     Route: 065
  28. BUPRENORPHINE AND NALOXONE [Suspect]
     Active Substance: BUPRENORPHINE HYDROCHLORIDE\NALOXONE HYDROCHLORIDE
     Dosage: 4 MG, THRICE A DAY
     Route: 065
  29. BUPRENORPHINE AND NALOXONE [Suspect]
     Active Substance: BUPRENORPHINE HYDROCHLORIDE\NALOXONE HYDROCHLORIDE
     Dosage: 2 MG, TWICE A DAY
     Route: 065
  30. BUPRENORPHINE AND NALOXONE [Suspect]
     Active Substance: BUPRENORPHINE HYDROCHLORIDE\NALOXONE HYDROCHLORIDE
     Dosage: 4 MG, TWICE A DAY
     Route: 065
  31. BUPRENORPHINE AND NALOXONE [Suspect]
     Active Substance: BUPRENORPHINE HYDROCHLORIDE\NALOXONE HYDROCHLORIDE
     Dosage: UNK
     Route: 065
  32. BUPRENORPHINE AND NALOXONE [Suspect]
     Active Substance: BUPRENORPHINE HYDROCHLORIDE\NALOXONE HYDROCHLORIDE
     Dosage: 3 MG
     Route: 065
  33. BUPRENORPHINE AND NALOXONE [Suspect]
     Active Substance: BUPRENORPHINE HYDROCHLORIDE\NALOXONE HYDROCHLORIDE
     Dosage: 2 MG
     Route: 065
  34. BUPRENORPHINE AND NALOXONE [Suspect]
     Active Substance: BUPRENORPHINE HYDROCHLORIDE\NALOXONE HYDROCHLORIDE
     Dosage: 0.5 MG
     Route: 065
  35. BUPRENORPHINE AND NALOXONE [Suspect]
     Active Substance: BUPRENORPHINE HYDROCHLORIDE\NALOXONE HYDROCHLORIDE
     Dosage: 24 MG, 1 EVERY 24 HOURS
     Route: 065
  36. BUPRENORPHINE AND NALOXONE [Suspect]
     Active Substance: BUPRENORPHINE HYDROCHLORIDE\NALOXONE HYDROCHLORIDE
     Dosage: 1.5 MG
     Route: 065
  37. BUPRENORPHINE AND NALOXONE [Suspect]
     Active Substance: BUPRENORPHINE HYDROCHLORIDE\NALOXONE HYDROCHLORIDE
     Dosage: 4 MG
  38. BUPRENORPHINE AND NALOXONE [Suspect]
     Active Substance: BUPRENORPHINE HYDROCHLORIDE\NALOXONE HYDROCHLORIDE
     Dosage: 12 MG, 1 EVERY 5 DAYS
     Route: 065
  39. BUPRENORPHINE AND NALOXONE [Suspect]
     Active Substance: BUPRENORPHINE HYDROCHLORIDE\NALOXONE HYDROCHLORIDE
     Dosage: 4 MG, 1 EVERY 5 DAYS
     Route: 065
  40. BUPRENORPHINE AND NALOXONE [Suspect]
     Active Substance: BUPRENORPHINE HYDROCHLORIDE\NALOXONE HYDROCHLORIDE
     Dosage: 1 MG, ONCE A DAY
     Route: 065
  41. BUPRENORPHINE AND NALOXONE [Suspect]
     Active Substance: BUPRENORPHINE HYDROCHLORIDE\NALOXONE HYDROCHLORIDE
     Dosage: 24 MG
     Route: 060
  42. HYDROMORPHONE [Suspect]
     Active Substance: HYDROMORPHONE
     Indication: Pain
     Dosage: 21 MG, TWICE A DAY
     Route: 065
  43. HYDROMORPHONE [Suspect]
     Active Substance: HYDROMORPHONE
     Indication: Drug withdrawal syndrome

REACTIONS (6)
  - Drug withdrawal syndrome [Unknown]
  - Drug use disorder [Unknown]
  - Off label use [Recovered/Resolved]
  - Therapeutic product effect incomplete [Unknown]
  - Inappropriate schedule of product administration [Recovered/Resolved]
  - Wrong technique in product usage process [Recovered/Resolved]
